FAERS Safety Report 8967054 (Version 2)
Quarter: 2012Q4

REPORT INFORMATION
  Report Type: 
  Country: CN (occurrence: CN)
  Receive Date: 20121214
  Receipt Date: 20121221
  Transmission Date: 20130627
  Serious: Yes (Other)
  Sender: FDA-Public Use
  Company Number: CN-PFIZER INC-2012315360

PATIENT
  Age: 42 Year
  Sex: Male

DRUGS (2)
  1. ZIPRASIDONE HCL [Suspect]
     Indication: SCHIZOPHRENIA
     Dosage: 140 tablets, 2800mg, single dose
     Route: 048
     Dates: start: 201001
  2. ALPRAZOLAM [Suspect]
     Dosage: 60 tablets, 24mg, single dose
     Route: 048

REACTIONS (5)
  - Overdose [Recovered/Resolved]
  - Suicide attempt [Recovered/Resolved]
  - Lethargy [Recovered/Resolved]
  - Sinus bradycardia [Unknown]
  - Electrocardiogram T wave amplitude decreased [Unknown]
